FAERS Safety Report 5823273-7 (Version None)
Quarter: 2008Q3

REPORT INFORMATION
  Report Type: 
  Country: None (occurrence: None)
  Receive Date: 20080725
  Receipt Date: 20080722
  Transmission Date: 20090109
  Serious: Yes (Other)
  Sender: FDA-Public Use
  Company Number: GB-BRISTOL-MYERS SQUIBB COMPANY-14275671

PATIENT
  Sex: Male

DRUGS (1)
  1. ABILIFY DISCMELT TABS 15MG [Suspect]

REACTIONS (3)
  - CONDITION AGGRAVATED [None]
  - DRUG DISPENSING ERROR [None]
  - HAEMORRHAGE [None]
